FAERS Safety Report 7304664-4 (Version None)
Quarter: 2011Q1

REPORT INFORMATION
  Report Type: 
  Country: None (occurrence: None)
  Receive Date: 20110222
  Receipt Date: 20110218
  Transmission Date: 20110831
  Serious: Yes (Death, Other)
  Sender: FDA-Public Use
  Company Number: US-AMGEN-USASP2011007016

PATIENT
  Sex: Male

DRUGS (1)
  1. NPLATE [Suspect]
     Indication: WALDENSTROM'S MACROGLOBULINAEMIA
     Dosage: UNK
     Dates: start: 20101027, end: 20101124

REACTIONS (3)
  - RENAL FAILURE [None]
  - PANCYTOPENIA [None]
  - DRUG INEFFECTIVE [None]
